FAERS Safety Report 9252792 (Version 1)
Quarter: 2013Q2

REPORT INFORMATION
  Report Type: Spontaneous
  Country: US (occurrence: US)
  Receive Date: 20130424
  Receipt Date: 20130424
  Transmission Date: 20140414
  Serious: No
  Sender: FDA-Public Use
  Company Number: US-BAUSCH-BL-2013-000012

PATIENT
  Age: 42 Year
  Sex: Female

DRUGS (2)
  1. LOTEMAX (LOTEPREDNOL ETABONATE OPHTHALMIC SUSPENSION 0.5%) [Suspect]
     Indication: DRY EYE
     Dosage: 1 DROP; FOUR TIMES A DAY; OPHTHALMIC
     Route: 047
     Dates: start: 20121207
  2. LOTEMAX (LOTEPREDNOL ETABONATE OPHTHALMIC SUSPENSION 0.5%) [Suspect]
     Indication: OFF LABEL USE

REACTIONS (2)
  - Medication residue present [Not Recovered/Not Resolved]
  - Foreign body in eye [Not Recovered/Not Resolved]
